FAERS Safety Report 9841530 (Version 1)
Quarter: 2014Q1

REPORT INFORMATION
  Report Type: Spontaneous
  Country: GB (occurrence: GB)
  Receive Date: 20140124
  Receipt Date: 20140124
  Transmission Date: 20141002
  Serious: Yes (Life-Threatening)
  Sender: FDA-Public Use
  Company Number: GB-PFIZER INC-2014019556

PATIENT
  Age: 24 Year
  Sex: Female
  Weight: 60 kg

DRUGS (4)
  1. DEPO-PROVERA [Suspect]
     Indication: CONTRACEPTION
     Dosage: 150 MG, UNK
     Route: 030
     Dates: start: 20140109, end: 20140109
  2. SERETIDE [Concomitant]
     Dosage: 2 PUFFS, 2X/DAY
  3. SALBUTAMOL [Concomitant]
     Dosage: UNK
  4. INFLUENZA VIRUS VACCINE [Concomitant]
     Dosage: UNK
     Dates: start: 20140106, end: 20140106

REACTIONS (6)
  - Hypersensitivity [Recovered/Resolved]
  - Feeling hot [Recovered/Resolved]
  - Pruritus [Recovered/Resolved]
  - Chest discomfort [Recovered/Resolved]
  - Non-cardiac chest pain [Recovered/Resolved]
  - Oxygen saturation decreased [Recovered/Resolved]
